FAERS Safety Report 13672551 (Version 2)
Quarter: 2017Q3

REPORT INFORMATION
  Report Type: Spontaneous
  Country: FR (occurrence: FR)
  Receive Date: 20170621
  Receipt Date: 20170816
  Transmission Date: 20171127
  Serious: Yes (Hospitalization)
  Sender: FDA-Public Use
  Company Number: FR-PFIZER INC-2017261607

PATIENT
  Age: 24 Year
  Sex: Male

DRUGS (10)
  1. VANCOMYCIN [Concomitant]
     Active Substance: VANCOMYCIN
     Indication: OSTEOMYELITIS
     Dosage: 1 G, 2X/DAY (EVERY 12 HRS)
     Route: 042
     Dates: start: 20170418, end: 20170422
  2. DALACINE [Suspect]
     Active Substance: CLINDAMYCIN HYDROCHLORIDE
     Indication: OSTEOMYELITIS
     Dosage: 600 MG, 3X/DAY (EVERY 8 HRS)
     Route: 048
     Dates: start: 20170418, end: 20170504
  3. IMIPENEM CILASTATIN KABI [Suspect]
     Active Substance: CILASTATIN SODIUM\IMIPENEM
     Dosage: 1 G, 3X/DAY (EVERY 8 HRS)
     Route: 042
     Dates: start: 20170422, end: 20170502
  4. VITAMINE C ARROW [Concomitant]
     Indication: HYPOVITAMINOSIS
     Dosage: 1 G, 1X/DAY (IN THE MORNING)
     Route: 048
  5. LYRICA [Concomitant]
     Active Substance: PREGABALIN
     Dosage: 75 MG, 2X/DAY (EVERY 12 HRS;ONE DF IN THE MORNING AND IN THE EVENING)
     Route: 048
  6. ALVITYL [Concomitant]
     Indication: HYPOVITAMINOSIS
     Dosage: 1 DF, 2X/DAY (IN THE MORNING AND IN THE EVENING)
     Route: 048
  7. DOLIPRANE [Concomitant]
     Active Substance: ACETAMINOPHEN
     Indication: PAIN
     Dosage: 1 G, 4X/DAY (EVERY 6 HRS)
     Route: 048
  8. VANCOMYCIN [Concomitant]
     Active Substance: VANCOMYCIN
     Dosage: 3 G, DAILY (EVERY 24 HOURS)
     Route: 042
     Dates: start: 20170422, end: 20170513
  9. IMIPENEM CILASTATIN KABI [Suspect]
     Active Substance: CILASTATIN SODIUM\IMIPENEM
     Indication: OSTEOMYELITIS
     Dosage: 500 MG, 4X/DAY (EVERY 6 HRS)
     Route: 042
     Dates: start: 20170418, end: 20170422
  10. IMOVANE [Concomitant]
     Active Substance: ZOPICLONE
     Indication: INSOMNIA
     Dosage: 7.5 MG, 1X/DAY AS NEEDED AT BEDTIME
     Route: 048

REACTIONS (1)
  - Hyperthermia [Recovered/Resolved]

NARRATIVE: CASE EVENT DATE: 20170429
